FAERS Safety Report 21850146 (Version 1)
Quarter: 2023Q1

REPORT INFORMATION
  Report Type: Spontaneous
  Country: US (occurrence: None)
  Receive Date: 20230111
  Receipt Date: 20230111
  Transmission Date: 20230418
  Serious: Yes (Hospitalization)
  Sender: FDA-Public Use
  Company Number: None

PATIENT
  Age: 65 Year
  Sex: Male
  Weight: 66.2 kg

DRUGS (1)
  1. MINOXIDIL [Suspect]
     Active Substance: MINOXIDIL
     Indication: Hypertension
     Dosage: FREQUENCY : DAILY;?
     Route: 048
     Dates: start: 20220720, end: 20221120

REACTIONS (4)
  - Renal transplant [None]
  - Dialysis [None]
  - Pericardial effusion [None]
  - COVID-19 [None]

NARRATIVE: CASE EVENT DATE: 20221115
